FAERS Safety Report 9602319 (Version 1)
Quarter: 2013Q4

REPORT INFORMATION
  Report Type: Spontaneous
  Country: US (occurrence: US)
  Receive Date: 20131007
  Receipt Date: 20131007
  Transmission Date: 20140711
  Serious: No
  Sender: FDA-Public Use
  Company Number: US-GLAXOSMITHKLINE-A1028562A

PATIENT
  Age: 17 Year
  Sex: Female

DRUGS (3)
  1. BENLYSTA [Suspect]
     Indication: SYSTEMIC LUPUS ERYTHEMATOSUS
     Dosage: 120MG CYCLIC
     Route: 065
     Dates: start: 20130617
  2. XANAX [Suspect]
  3. UNKNOWN [Concomitant]

REACTIONS (4)
  - Dizziness [Recovering/Resolving]
  - Malaise [Recovering/Resolving]
  - Gait disturbance [Recovering/Resolving]
  - Anxiety [Recovering/Resolving]
